FAERS Safety Report 11588455 (Version 6)
Quarter: 2015Q4

REPORT INFORMATION
  Report Type: Spontaneous
  Country: US (occurrence: US)
  Receive Date: 20151002
  Receipt Date: 20151110
  Transmission Date: 20160304
  Serious: Yes (Hospitalization)
  Sender: FDA-Public Use
  Company Number: US-ROCHE-1620138

PATIENT
  Age: 79 Year
  Sex: Female
  Weight: 58.11 kg

DRUGS (2)
  1. ESBRIET [Suspect]
     Active Substance: PIRFENIDONE
     Route: 048
     Dates: start: 20150201, end: 20150228
  2. ESBRIET [Suspect]
     Active Substance: PIRFENIDONE
     Indication: IDIOPATHIC PULMONARY FIBROSIS
     Dosage: 3 CAPSULE OF 267 MG THRICE DAILY?2403 MG
     Route: 048
     Dates: start: 20150717

REACTIONS (5)
  - Dyspepsia [Unknown]
  - Diarrhoea [Recovered/Resolved]
  - Hip fracture [Unknown]
  - Rash [Unknown]
  - Abdominal distension [Unknown]

NARRATIVE: CASE EVENT DATE: 201502
